FAERS Safety Report 5715121-0 (Version None)
Quarter: 2008Q2

REPORT INFORMATION
  Report Type: 
  Country: None (occurrence: None)
  Receive Date: 20080423
  Receipt Date: 20080419
  Transmission Date: 20081010
  Serious: Yes (Hospitalization, Other)
  Sender: FDA-Public Use
  Company Number: GR-BOEHRINGER INGELHEIM GMBH, GERMANY-2008-DE-01799GB

PATIENT
  Age: 70 Year
  Sex: Female

DRUGS (2)
  1. MICARDIS [Suspect]
     Dosage: 40MG
     Route: 048
     Dates: start: 20080110, end: 20080215
  2. LERCADIP [Suspect]
     Dosage: 10MG
     Route: 048
     Dates: start: 20080110, end: 20080215

REACTIONS (1)
  - VASCULITIS [None]
